FAERS Safety Report 16662930 (Version 1)
Quarter: 2019Q3

REPORT INFORMATION
  Report Type: Report from Study
  Country: US (occurrence: US)
  Receive Date: 20190802
  Receipt Date: 20190802
  Transmission Date: 20191004
  Serious: No
  Sender: FDA-Public Use
  Company Number: US-EXELIXIS-CABO-19019641

PATIENT
  Age: 72 Year
  Sex: Female

DRUGS (2)
  1. METFORMIN [Concomitant]
     Active Substance: METFORMIN HYDROCHLORIDE
  2. CABOMETYX [Suspect]
     Active Substance: CABOZANTINIB S-MALATE
     Indication: UTERINE CANCER
     Dosage: 40 MG, QD (IN THE EVENING WITHOUT FOOD)
     Dates: start: 20190307

REACTIONS (6)
  - Pain in jaw [Recovered/Resolved]
  - Diarrhoea [Unknown]
  - Off label use [Unknown]
  - Dry skin [Recovered/Resolved]
  - Neuropathy peripheral [Recovering/Resolving]
  - Nausea [Recovered/Resolved]

NARRATIVE: CASE EVENT DATE: 201903
